FAERS Safety Report 22614169 (Version 1)
Quarter: 2023Q2

REPORT INFORMATION
  Report Type: Report from Study
  Country: US (occurrence: US)
  Receive Date: 20230619
  Receipt Date: 20230619
  Transmission Date: 20230721
  Serious: Yes (Other)
  Sender: FDA-Public Use
  Company Number: US-ABBVIE-5188277

PATIENT
  Sex: Female

DRUGS (4)
  1. VENCLEXTA [Suspect]
     Active Substance: VENETOCLAX
     Indication: Chronic lymphocytic leukaemia
     Dosage: WEEK 2?FORM STRENGTH: 50 MG?LAST ADMIN DATE: 2023
     Route: 048
     Dates: start: 20230527
  2. VENCLEXTA [Suspect]
     Active Substance: VENETOCLAX
     Indication: Chronic lymphocytic leukaemia
     Dosage: WEEK 1?LAST ADMIN DATE: MAY 2023?FORM STRENGTH: 10 MG
     Route: 048
     Dates: start: 20230520
  3. VENCLEXTA [Suspect]
     Active Substance: VENETOCLAX
     Indication: Chronic lymphocytic leukaemia
     Dosage: WEEK 4
     Route: 048
     Dates: start: 20230610
  4. VENCLEXTA [Suspect]
     Active Substance: VENETOCLAX
     Indication: Chronic lymphocytic leukaemia
     Dosage: WEEK 3
     Route: 048
     Dates: start: 2023, end: 2023

REACTIONS (15)
  - Full blood count decreased [Recovering/Resolving]
  - Vision blurred [Not Recovered/Not Resolved]
  - Nausea [Not Recovered/Not Resolved]
  - Bone pain [Unknown]
  - Arthralgia [Unknown]
  - Haemoglobin decreased [Recovering/Resolving]
  - Night sweats [Unknown]
  - Decreased appetite [Unknown]
  - Headache [Unknown]
  - Abdominal pain upper [Unknown]
  - Fatigue [Unknown]
  - Hypersomnia [Unknown]
  - Flatulence [Unknown]
  - Chromaturia [Unknown]
  - Pollakiuria [Unknown]

NARRATIVE: CASE EVENT DATE: 20230101
